FAERS Safety Report 7645375-5 (Version None)
Quarter: 2011Q3

REPORT INFORMATION
  Report Type: 
  Country: None (occurrence: None)
  Receive Date: 20110729
  Receipt Date: 20110727
  Transmission Date: 20111222
  Serious: Yes (Hospitalization, Other)
  Sender: FDA-Public Use
  Company Number: JP-PFIZER INC-2011150182

PATIENT
  Age: 72 Year
  Sex: Male

DRUGS (3)
  1. VARENICLINE TARTRATE [Suspect]
     Dosage: 0.5 MG, 2X/DAY
     Route: 048
     Dates: start: 20110610, end: 20110613
  2. VARENICLINE TARTRATE [Suspect]
     Indication: SMOKING CESSATION THERAPY
     Dosage: 0.5 MG, 1X/DAY
     Route: 048
     Dates: start: 20110607, end: 20110609
  3. VARENICLINE TARTRATE [Suspect]
     Dosage: 1 MG, 2X/DAY
     Route: 048
     Dates: start: 20110614, end: 20110626

REACTIONS (5)
  - SUICIDE ATTEMPT [None]
  - HAEMATEMESIS [None]
  - OESOPHAGEAL ULCER [None]
  - MALLORY-WEISS SYNDROME [None]
  - VOMITING [None]
